FAERS Safety Report 16638350 (Version 2)
Quarter: 2019Q3

REPORT INFORMATION
  Report Type: Spontaneous
  Country: FR (occurrence: FR)
  Receive Date: 20190726
  Receipt Date: 20190816
  Transmission Date: 20191004
  Serious: Yes (Other)
  Sender: FDA-Public Use
  Company Number: FR-OTSUKA-2019_026950

PATIENT

DRUGS (6)
  1. LAMOTRIGINE ARROW [Suspect]
     Active Substance: LAMOTRIGINE
     Indication: DEPRESSION
     Dosage: 50 MG, UNK (STRENGTH: 50 MG)
     Route: 048
     Dates: start: 20190614
  2. ABILIFY [Suspect]
     Active Substance: ARIPIPRAZOLE
     Indication: BIPOLAR DISORDER
     Dosage: 15 MG, QD
     Route: 048
     Dates: start: 2010, end: 20190517
  3. LAMOTRIGINE ARROW [Suspect]
     Active Substance: LAMOTRIGINE
     Indication: BIPOLAR DISORDER
     Dosage: 200 MG, QD (1 TABLET IN THE EVENING) (STRENGTH: 200 MG)
     Route: 048
     Dates: start: 2010, end: 20190517
  4. ABILIFY [Suspect]
     Active Substance: ARIPIPRAZOLE
     Dosage: 15 MG, QD
     Route: 048
     Dates: start: 20190614
  5. CANDESARTAN. [Concomitant]
     Active Substance: CANDESARTAN
     Indication: HYPERTENSION
     Dosage: 8 MG, QD
     Route: 065
  6. TEMERIT [Concomitant]
     Active Substance: NEBIVOLOL
     Indication: HYPERTENSION
     Dosage: 5 MG, QD
     Route: 065

REACTIONS (3)
  - Pancytopenia [Not Recovered/Not Resolved]
  - Haemoglobin decreased [Unknown]
  - Influenza like illness [Recovered/Resolved]

NARRATIVE: CASE EVENT DATE: 201703
